FAERS Safety Report 6524023-1 (Version None)
Quarter: 2009Q4

REPORT INFORMATION
  Report Type: 
  Country: None (occurrence: None)
  Receive Date: 20091230
  Receipt Date: 20091230
  Transmission Date: 20100525
  Serious: Yes (Hospitalization)
  Sender: FDA-Public Use
  Company Number: None

PATIENT
  Sex: Female
  Weight: 103 kg

DRUGS (2)
  1. CISPLATIN [Suspect]
     Dosage: 155 MG
  2. ETOPOSIDE [Suspect]
     Dosage: 621 MG
     Dates: end: 20091120

REACTIONS (5)
  - DEHYDRATION [None]
  - HYPOKALAEMIA [None]
  - HYPOMAGNESAEMIA [None]
  - NAUSEA [None]
  - VOMITING [None]
